FAERS Safety Report 9838004 (Version 1)
Quarter: 2014Q1

REPORT INFORMATION
  Report Type: Report from Study
  Country: US (occurrence: US)
  Receive Date: 20140123
  Receipt Date: 20140123
  Transmission Date: 20141002
  Serious: Yes (Hospitalization, Other)
  Sender: FDA-Public Use
  Company Number: US-ABBVIE-14P-163-1190479-00

PATIENT
  Sex: Female
  Weight: 63.56 kg

DRUGS (37)
  1. HUMIRA [Suspect]
     Indication: CROHN^S DISEASE
     Dates: end: 201312
  2. ALL OTHER THERAPEUTIC PRODUCTS [Suspect]
     Indication: PRODUCT USED FOR UNKNOWN INDICATION
  3. TRAZODONE [Concomitant]
     Indication: INSOMNIA
  4. TRAMADOL [Concomitant]
     Indication: PAIN
  5. STRATTERA [Concomitant]
     Indication: ATTENTION DEFICIT/HYPERACTIVITY DISORDER
  6. STRATTERA [Concomitant]
     Indication: POST-TRAUMATIC STRESS DISORDER
  7. STRATTERA [Concomitant]
     Indication: PANIC ATTACK
  8. DIAZEPAM [Concomitant]
     Indication: ANXIETY
  9. ONDANSETRON [Concomitant]
     Indication: NAUSEA
  10. HYOSCYAMINE [Concomitant]
     Indication: ABDOMINAL PAIN
  11. APRISO [Concomitant]
     Indication: CROHN^S DISEASE
  12. GINGER ROOT [Concomitant]
     Indication: HIATUS HERNIA
  13. GINGER ROOT [Concomitant]
     Indication: GASTROOESOPHAGEAL REFLUX DISEASE
  14. WHITE WILLOW BARK [Concomitant]
     Indication: PRODUCT USED FOR UNKNOWN INDICATION
  15. RELAX AND SLEEP [Concomitant]
     Indication: INSOMNIA
  16. VENTOLIN [Concomitant]
     Indication: ASTHMA
  17. VENTOLIN [Concomitant]
     Indication: CHRONIC OBSTRUCTIVE PULMONARY DISEASE
  18. DUONEB [Concomitant]
     Indication: CHRONIC OBSTRUCTIVE PULMONARY DISEASE
  19. RESTASIS [Concomitant]
     Indication: DRY EYE
  20. VITAMIN D [Concomitant]
     Indication: VITAMIN D DEFICIENCY
  21. POTASSIUM [Concomitant]
     Indication: BLOOD POTASSIUM DECREASED
  22. PRILOSEC [Concomitant]
     Indication: GASTROOESOPHAGEAL REFLUX DISEASE
  23. METHOCARBAMOL [Concomitant]
     Indication: FIBROMYALGIA
  24. METHOCARBAMOL [Concomitant]
     Indication: OSTEOARTHRITIS
  25. METHOCARBAMOL [Concomitant]
     Indication: MUSCLE SPASMS
  26. SENOKOT-S [Concomitant]
     Indication: CONSTIPATION
  27. ACIDOPHILUS [Concomitant]
     Indication: CONSTIPATION
  28. METOCLOPRAMIDE [Concomitant]
     Indication: NAUSEA
  29. MENTHOL RELIEF STICK [Concomitant]
     Indication: FIBROMYALGIA
  30. MENTHOL RELIEF STICK [Concomitant]
     Indication: OSTEOARTHRITIS
  31. FOLIC ACID [Concomitant]
     Indication: PRODUCT USED FOR UNKNOWN INDICATION
  32. LIDOCAINE/MYLANTA [Concomitant]
     Indication: PRODUCT USED FOR UNKNOWN INDICATION
  33. TRIAMCINOLONE [Concomitant]
     Indication: PRODUCT USED FOR UNKNOWN INDICATION
  34. LIDODERM [Concomitant]
     Indication: PRODUCT USED FOR UNKNOWN INDICATION
  35. NYSTATIN [Concomitant]
     Indication: PRODUCT USED FOR UNKNOWN INDICATION
  36. CLOTRIMAZOLE [Concomitant]
     Indication: PRODUCT USED FOR UNKNOWN INDICATION
  37. IRON [Concomitant]
     Indication: PRODUCT USED FOR UNKNOWN INDICATION

REACTIONS (15)
  - Pulmonary oedema [Recovered/Resolved]
  - Asthenia [Recovered/Resolved]
  - Depression [Unknown]
  - Haematemesis [Recovered/Resolved]
  - Loss of consciousness [Recovered/Resolved]
  - Pulmonary embolism [Recovered/Resolved]
  - Pneumonia [Recovered/Resolved]
  - Rotator cuff syndrome [Not Recovered/Not Resolved]
  - Joint injury [Not Recovered/Not Resolved]
  - Bone deformity [Not Recovered/Not Resolved]
  - Pneumonia [Recovered/Resolved]
  - Oesophageal disorder [Unknown]
  - Urinary tract infection [Recovered/Resolved]
  - Pneumonia [Recovered/Resolved]
  - Oesophageal rupture [Unknown]
